FAERS Safety Report 8270058-0 (Version None)
Quarter: 2012Q1

REPORT INFORMATION
  Report Type: 
  Country: None (occurrence: None)
  Receive Date: 20120327
  Receipt Date: 20091231
  Transmission Date: 20120608
  Serious: Yes (Other)
  Sender: FDA-Public Use
  Company Number: PHEH2009US09643

PATIENT
  Sex: Male
  Weight: 83.7 kg

DRUGS (3)
  1. VITAMIN TAB [Concomitant]
  2. BABAY ASPIRIN (ACETYLSALICYLIC ACID) [Concomitant]
  3. GLEEVEC [Suspect]
     Indication: CHRONIC MYELOID LEUKAEMIA
     Dosage: 400 MG, BID, ORAL
     Route: 048
     Dates: start: 20041001

REACTIONS (4)
  - ARTHRALGIA [None]
  - NAUSEA [None]
  - PAIN [None]
  - MYALGIA [None]
